FAERS Safety Report 17807876 (Version 1)
Quarter: 2020Q2

REPORT INFORMATION
  Report Type: Spontaneous
  Country: US (occurrence: US)
  Receive Date: 20200520
  Receipt Date: 20200520
  Transmission Date: 20200714
  Serious: No
  Sender: FDA-Public Use
  Company Number: None

PATIENT
  Age: 49 Year
  Sex: Male

DRUGS (4)
  1. ALPROLIX [Suspect]
     Active Substance: EFTRENONACOG ALFA
     Indication: FACTOR IX DEFICIENCY
     Route: 042
  2. CELECOXIB. [Concomitant]
     Active Substance: CELECOXIB
  3. COLCHICINE. [Concomitant]
     Active Substance: COLCHICINE
  4. ALLOPURINOL. [Concomitant]
     Active Substance: ALLOPURINOL

REACTIONS (2)
  - Limb injury [None]
  - Haemorrhage [None]

NARRATIVE: CASE EVENT DATE: 20200519
